FAERS Safety Report 4781802-9 (Version None)
Quarter: 2005Q3

REPORT INFORMATION
  Report Type: 
  Country: None (occurrence: None)
  Receive Date: 20050914
  Receipt Date: 20050418
  Transmission Date: 20060218
  Serious: Yes (Hospitalization, Other)
  Sender: FDA-Public Use
  Company Number: 163-20785-05040372

PATIENT
  Sex: Female

DRUGS (3)
  1. THALOMID [Suspect]
     Indication: FIBROMYALGIA
     Dosage: 300 MG, QD, ORAL; 100 MG, QD, ORAL; 50 MG, QD, ORAL
     Route: 048
     Dates: start: 20050310, end: 20050316
  2. THALOMID [Suspect]
     Indication: FIBROMYALGIA
     Dosage: 300 MG, QD, ORAL; 100 MG, QD, ORAL; 50 MG, QD, ORAL
     Route: 048
     Dates: start: 20050317, end: 20050330
  3. THALOMID [Suspect]
     Indication: FIBROMYALGIA
     Dosage: 300 MG, QD, ORAL; 100 MG, QD, ORAL; 50 MG, QD, ORAL
     Route: 048
     Dates: start: 20050331, end: 20050417

REACTIONS (3)
  - DEEP VEIN THROMBOSIS [None]
  - OEDEMA PERIPHERAL [None]
  - PAIN IN EXTREMITY [None]
